FAERS Safety Report 20248249 (Version 1)
Quarter: 2021Q4

REPORT INFORMATION
  Report Type: Spontaneous
  Country: US (occurrence: None)
  Receive Date: 20211228
  Receipt Date: 20211228
  Transmission Date: 20220303
  Serious: Yes (Hospitalization)
  Sender: FDA-Public Use
  Company Number: None

PATIENT
  Age: 77 Year
  Sex: Male

DRUGS (1)
  1. WARFARIN SODIUM [Suspect]
     Active Substance: WARFARIN SODIUM
     Dosage: FREQUENCY : DAILY;?
     Route: 048
     Dates: start: 20141114, end: 20211201

REACTIONS (15)
  - Fatigue [None]
  - Asthenia [None]
  - Haematocrit decreased [None]
  - Lower gastrointestinal haemorrhage [None]
  - Colitis ischaemic [None]
  - Anaemia macrocytic [None]
  - Anticoagulation drug level above therapeutic [None]
  - Anti-platelet antibody positive [None]
  - Bone marrow disorder [None]
  - Red blood cell target cells present [None]
  - Colonoscopy abnormal [None]
  - Colitis [None]
  - Large intestine polyp [None]
  - Portal hypertension [None]
  - Gastric haemorrhage [None]

NARRATIVE: CASE EVENT DATE: 20211201
